FAERS Safety Report 6049514-1 (Version None)
Quarter: 2009Q1

REPORT INFORMATION
  Report Type: 
  Country: None (occurrence: None)
  Receive Date: 20090121
  Receipt Date: 20090112
  Transmission Date: 20090719
  Serious: Yes (Hospitalization)
  Sender: FDA-Public Use
  Company Number: 200839108NA

PATIENT
  Age: 47 Year
  Sex: Male

DRUGS (8)
  1. CAMPATH [Suspect]
     Indication: TRANSPLANT
     Dates: start: 20081002, end: 20081006
  2. FLUDARABINE PHOSPHATE [Suspect]
     Indication: TRANSPLANT
     Dates: start: 20081002, end: 20081006
  3. BUSULFAN (BUSULFAN) [Suspect]
     Indication: TRANSPLANT
     Dates: start: 20081002, end: 20081006
  4. CLOFARABINE (CLOFARABINE) [Suspect]
     Indication: MYELODYSPLASTIC SYNDROME
     Dates: start: 20080918, end: 20080922
  5. PROGRAF [Concomitant]
  6. VORICONAZOLE (VORICONAZOLE) [Concomitant]
  7. IMIPENEM (IMIPENEM) [Concomitant]
  8. AZTREONAM (AZTREONAM) [Concomitant]

REACTIONS (5)
  - CONFUSIONAL STATE [None]
  - ELECTROENCEPHALOGRAM ABNORMAL [None]
  - ENCEPHALOPATHY [None]
  - SOMNOLENCE [None]
  - STEM CELL TRANSPLANT [None]
